FAERS Safety Report 17689302 (Version 1)
Quarter: 2020Q2

REPORT INFORMATION
  Report Type: Spontaneous
  Country: US (occurrence: US)
  Receive Date: 20200420
  Receipt Date: 20200420
  Transmission Date: 20200714
  Serious: No
  Sender: FDA-Public Use
  Company Number: None

PATIENT
  Age: 27 Year
  Sex: Male
  Weight: 110.22 kg

DRUGS (1)
  1. ISENTRESS [Suspect]
     Active Substance: RALTEGRAVIR POTASSIUM
     Indication: PROPHYLAXIS AGAINST HIV INFECTION
     Dosage: ?          QUANTITY:60 PILLS;?
     Route: 048
     Dates: start: 20191228, end: 20200127

REACTIONS (3)
  - Therapy cessation [None]
  - Night sweats [None]
  - Chills [None]

NARRATIVE: CASE EVENT DATE: 20191229
